FAERS Safety Report 10206798 (Version 1)
Quarter: 2014Q2

REPORT INFORMATION
  Report Type: Spontaneous
  Country: US (occurrence: US)
  Receive Date: 20140530
  Receipt Date: 20140530
  Transmission Date: 20141212
  Serious: Yes (Other)
  Sender: FDA-Public Use
  Company Number: US-B.I. PHARMACEUTICALS,INC./RIDGEFIELD-2014-BI-23247BP

PATIENT
  Age: 83 Year
  Sex: Female
  Weight: 75 kg

DRUGS (10)
  1. COMBIVENT [Suspect]
     Indication: CHRONIC OBSTRUCTIVE PULMONARY DISEASE
     Dosage: DOSE PER APPLICATION: 18 MCG / 103 MCG; DAILY DOSE: 54MCG/ 309 MCG
     Route: 055
     Dates: start: 2004, end: 201402
  2. NEXIUM [Concomitant]
     Indication: GASTROOESOPHAGEAL REFLUX DISEASE
     Dosage: 40 MG
     Route: 048
  3. LOSARTAN [Concomitant]
     Indication: HYPERTENSION
     Dosage: 75 MG
     Route: 048
  4. SPIRONOLACTONE [Concomitant]
     Indication: HYPERTENSION
     Route: 048
  5. MIACALCIN [Concomitant]
     Indication: BONE DISORDER
     Dosage: FORMULATION: NASAL SPRAY
     Route: 045
  6. NORVASC [Concomitant]
     Indication: HYPERTENSION
     Dosage: 5 MG
     Route: 048
  7. ALPHAGAN [Concomitant]
     Indication: INTRAOCULAR PRESSURE INCREASED
     Route: 050
  8. XANAX [Concomitant]
     Indication: ANXIETY
     Route: 048
  9. ADVAIR [Concomitant]
     Indication: CHRONIC OBSTRUCTIVE PULMONARY DISEASE
     Route: 055
  10. METOPROLOL [Concomitant]
     Indication: HYPERTENSION
     Dosage: 50 MG
     Route: 048

REACTIONS (2)
  - Macular degeneration [Not Recovered/Not Resolved]
  - Dyspnoea [Not Recovered/Not Resolved]
